FAERS Safety Report 6399067-3 (Version None)
Quarter: 2009Q4

REPORT INFORMATION
  Report Type: 
  Country: None (occurrence: None)
  Receive Date: 20091013
  Receipt Date: 20091006
  Transmission Date: 20100525
  Serious: Yes (Death, Life-Threatening)
  Sender: FDA-Public Use
  Company Number: BE-ABBOTT-09P-013-0590810-00

PATIENT
  Sex: Male
  Weight: 82 kg

DRUGS (3)
  1. LUCRIN DEPOT SUSPENSION [Suspect]
     Indication: PROSTATE CANCER
     Dates: start: 20070313
  2. LUCRIN DEPOT 11.25 MG [Suspect]
     Indication: PROSTATE CANCER
     Dates: start: 20070612
  3. BICALUTAMIDE [Concomitant]
     Indication: DRUG USE FOR UNKNOWN INDICATION
     Dosage: 2 TIMES 50 MG
     Dates: start: 20070313

REACTIONS (2)
  - ENTEROVESICAL FISTULA [None]
  - RENAL FAILURE [None]
